FAERS Safety Report 18798111 (Version 1)
Quarter: 2021Q1

REPORT INFORMATION
  Report Type: Spontaneous
  Country: AU (occurrence: AU)
  Receive Date: 20210128
  Receipt Date: 20210128
  Transmission Date: 20210419
  Serious: Yes (Other)
  Sender: FDA-Public Use
  Company Number: AU-GILEAD-2020-0502247

PATIENT
  Age: 58 Year
  Sex: Female

DRUGS (2)
  1. AMBRISENTAN [Suspect]
     Active Substance: AMBRISENTAN
     Indication: PULMONARY ARTERIAL HYPERTENSION
     Dosage: 10 MG X 1/2 TABLET DAILY
     Route: 065
  2. TADAFIL [Suspect]
     Active Substance: TADALAFIL
     Indication: PRODUCT USED FOR UNKNOWN INDICATION
     Dosage: 20 MG X 2 DAILY
     Route: 065

REACTIONS (11)
  - Myalgia [Unknown]
  - Wrong technique in product usage process [Unknown]
  - Pulmonary arterial hypertension [Unknown]
  - Sleep disorder [Unknown]
  - Ill-defined disorder [Unknown]
  - Malaise [Unknown]
  - Headache [Unknown]
  - Anxiety [Unknown]
  - Abdominal discomfort [Unknown]
  - Therapy interrupted [Unknown]
  - Dysphagia [Unknown]
